FAERS Safety Report 4470441-5 (Version None)
Quarter: 2004Q3

REPORT INFORMATION
  Report Type: 
  Country: None (occurrence: None)
  Receive Date: 20040909
  Receipt Date: 20040616
  Transmission Date: 20050211
  Serious: Yes (Life-Threatening)
  Sender: FDA-Public Use
  Company Number: US-JNJFOC-20040402918

PATIENT
  Age: 81 Year
  Sex: Male
  Weight: 174 kg

DRUGS (7)
  1. NATRECOR [Suspect]
     Indication: CARDIAC FAILURE CONGESTIVE
     Dosage: 158 UG, INTRAVENOUS
     Route: 042
     Dates: start: 20040412, end: 20040412
  2. LASIX [Concomitant]
  3. AMIODARONE HCL [Concomitant]
  4. VASOTEC [Concomitant]
  5. ZAROXOLYN [Concomitant]
  6. LOVENOX [Concomitant]
  7. POTASSIUM (POTASSIUM) [Concomitant]

REACTIONS (1)
  - VENTRICULAR TACHYCARDIA [None]
